FAERS Safety Report 21186158 (Version 1)
Quarter: 2022Q3

REPORT INFORMATION
  Report Type: Spontaneous
  Country: JP (occurrence: JP)
  Receive Date: 20220808
  Receipt Date: 20220808
  Transmission Date: 20221026
  Serious: Yes (Hospitalization)
  Sender: FDA-Public Use
  Company Number: JP-GILEAD-2022-0592328

PATIENT
  Age: 87 Year
  Sex: Male

DRUGS (31)
  1. VEKLURY [Suspect]
     Active Substance: REMDESIVIR
     Indication: COVID-19
     Dosage: 200 MG, QD
     Route: 041
     Dates: start: 20220719, end: 20220719
  2. VEKLURY [Suspect]
     Active Substance: REMDESIVIR
     Dosage: 100 MG, QD
     Route: 041
     Dates: start: 20220720, end: 20220724
  3. CALONAL [Suspect]
     Active Substance: ACETAMINOPHEN
     Indication: Chondrocalcinosis pyrophosphate
     Dosage: 400 MG, QID
     Route: 048
     Dates: end: 20220726
  4. MEROPENEM [Concomitant]
     Active Substance: MEROPENEM
     Indication: Pneumonia bacterial
     Dosage: 0.5 G, BID
     Route: 041
     Dates: start: 20220616, end: 20220625
  5. MEROPENEM [Concomitant]
     Active Substance: MEROPENEM
     Dosage: 0.5 G, BID
     Route: 041
     Dates: start: 20220702, end: 20220724
  6. VANCOMYCIN [Concomitant]
     Active Substance: VANCOMYCIN
     Indication: Pneumonia staphylococcal
     Dosage: 1 G, QD
     Route: 041
     Dates: start: 20220625, end: 20220625
  7. VANCOMYCIN [Concomitant]
     Active Substance: VANCOMYCIN
     Dosage: 0.5 G, QD
     Route: 041
     Dates: start: 20220626, end: 20220723
  8. ELECTROLYTES NOS [Concomitant]
     Active Substance: ELECTROLYTES NOS
     Indication: Nutritional supplementation
     Dosage: 500 ML, QD
     Route: 041
     Dates: start: 20220616, end: 20220617
  9. ELECTROLYTES NOS [Concomitant]
     Active Substance: ELECTROLYTES NOS
     Dosage: 500 ML, QD
     Route: 041
     Dates: start: 20220703, end: 20220704
  10. VITAMINS [Concomitant]
     Active Substance: VITAMINS
     Indication: Nutritional supplementation
     Dosage: QD
     Route: 041
     Dates: start: 20220616, end: 20220617
  11. VITAMINS [Concomitant]
     Active Substance: VITAMINS
     Indication: Dehydration
     Dosage: QD
     Route: 041
     Dates: start: 20220703, end: 20220704
  12. VITAMINS [Concomitant]
     Active Substance: VITAMINS
     Dosage: 2 ML, QD
     Route: 041
     Dates: start: 20220705, end: 20220707
  13. CALCIUM CHLORIDE ANHYDROUS\POTASSIUM CHLORIDE\SODIUM CHLORIDE\SODIUM L [Concomitant]
     Active Substance: CALCIUM CHLORIDE ANHYDROUS\POTASSIUM CHLORIDE\SODIUM CHLORIDE\SODIUM LACTATE
     Indication: Dehydration
     Dosage: 500 ML, QD
     Route: 041
     Dates: start: 20220616, end: 20220617
  14. CALCIUM CHLORIDE ANHYDROUS\POTASSIUM CHLORIDE\SODIUM CHLORIDE\SODIUM L [Concomitant]
     Active Substance: CALCIUM CHLORIDE ANHYDROUS\POTASSIUM CHLORIDE\SODIUM CHLORIDE\SODIUM LACTATE
     Dosage: 500 ML, QD
     Route: 041
     Dates: start: 20220705, end: 20220707
  15. DEXTROSE [Concomitant]
     Active Substance: DEXTROSE
     Indication: Dehydration
     Dosage: 40 ML, QD
     Route: 041
     Dates: start: 20220616, end: 20220617
  16. DEXTROSE [Concomitant]
     Active Substance: DEXTROSE
     Dosage: 40 ML, QD
     Route: 041
     Dates: start: 20220705, end: 20220707
  17. POTASSIUM CHLORIDE\SODIUM CHLORIDE\SODIUM LACTATE [Concomitant]
     Active Substance: POTASSIUM CHLORIDE\SODIUM CHLORIDE\SODIUM LACTATE
     Indication: Dehydration
     Dosage: 500 ML, QD
     Route: 041
     Dates: start: 20220628, end: 20220702
  18. SOLITA-T1 [Concomitant]
     Indication: Dehydration
     Dosage: 500 ML, QD
     Route: 041
     Dates: start: 20220702, end: 20220702
  19. AMINO ACIDS\DEXTROSE\ELECTROLYTES NOS\VITAMINS [Concomitant]
     Active Substance: AMINO ACIDS\DEXTROSE\ELECTROLYTES NOS\VITAMINS
     Indication: Nutritional supplementation
     Dosage: 1000 ML, QD
     Route: 041
     Dates: start: 20220704, end: 20220707
  20. SODIUM CHLORIDE [Concomitant]
     Active Substance: SODIUM CHLORIDE
     Indication: Dehydration
     Dosage: 500 ML, QD
     Route: 041
     Dates: start: 20220708, end: 20220709
  21. DAYVIGO [Concomitant]
     Active Substance: LEMBOREXANT
     Dosage: 1 DOSAGE FORM, QD
  22. RISPERDAL [Concomitant]
     Active Substance: RISPERIDONE
     Dosage: 0.5 DOSAGE FORM, QD
  23. CANDESARTAN CILEXETIL [Concomitant]
     Active Substance: CANDESARTAN CILEXETIL
     Dosage: 1 DOSAGE FORM, QD
  24. KREMEZIN [Concomitant]
     Active Substance: ACTIVATED CHARCOAL
     Dosage: 2 G, TID
  25. MAGNESIUM OXIDE [Concomitant]
     Active Substance: MAGNESIUM OXIDE
     Dosage: 1 DOSAGE FORM, BID
  26. TRAMADOL [Concomitant]
     Active Substance: TRAMADOL
     Dosage: 1 DOSAGE FORM, BID
  27. IFENPRODIL [Concomitant]
     Active Substance: IFENPRODIL
     Dosage: 1 DOSAGE FORM, TID
  28. LIPITOR [Concomitant]
     Active Substance: ATORVASTATIN CALCIUM
     Dosage: 1 DOSAGE FORM, QD
  29. HERBALS [Concomitant]
     Active Substance: HERBALS
     Dosage: 2.5 G, BID
  30. MOKUBOITO [Concomitant]
     Dosage: 2.5 G, BID
  31. LULICONAZOLE [Concomitant]
     Active Substance: LULICONAZOLE
     Dosage: QD

REACTIONS (1)
  - Hepatic function abnormal [Recovered/Resolved]

NARRATIVE: CASE EVENT DATE: 20220725
